FAERS Safety Report 11326997 (Version 1)
Quarter: 2015Q3

REPORT INFORMATION
  Report Type: Spontaneous
  Country: GB (occurrence: GB)
  Receive Date: 20150731
  Receipt Date: 20150731
  Transmission Date: 20151125
  Serious: Yes (Hospitalization)
  Sender: FDA-Public Use
  Company Number: GB-TEVA-580836ACC

PATIENT
  Age: 91 Year

DRUGS (10)
  1. DIETHYLAMINE SALICYLATE [Concomitant]
     Active Substance: DIETHYLAMINE SALICYLATE
     Dosage: 3 DOSAGE FORMS DAILY;
  2. DOXAZOSIN [Concomitant]
     Active Substance: DOXAZOSIN\DOXAZOSIN MESYLATE
     Dosage: 1 MILLIGRAM DAILY;
     Dates: start: 20150319
  3. TRIMETHOPRIM. [Concomitant]
     Active Substance: TRIMETHOPRIM
     Dosage: 400 MILLIGRAM DAILY;
     Dates: start: 20150706
  4. BENDROFLUMETHIAZIDE [Suspect]
     Active Substance: BENDROFLUMETHIAZIDE
     Dosage: 2.5 MILLIGRAM DAILY;
     Dates: start: 1995, end: 20150709
  5. ACICLOVIR [Concomitant]
     Active Substance: ACYCLOVIR
     Dosage: 4000 MILLIGRAM DAILY;
     Dates: start: 20150630, end: 20150706
  6. FYBOGEL [Concomitant]
     Active Substance: PLANTAGO OVATA SEED
     Dosage: AS DIRECTED.; EFFERVESCENT GRANULES
  7. VISCOTEARS [Concomitant]
     Active Substance: CARBOMER
     Dosage: 2MG/G.
  8. QUININE [Concomitant]
     Active Substance: QUININE
     Dosage: 300 MILLIGRAM DAILY; EACH NIGHT.
  9. IRBESARTAN. [Suspect]
     Active Substance: IRBESARTAN
     Dosage: 300 MILLIGRAM DAILY;
  10. PROCHLORPERAZINE. [Concomitant]
     Active Substance: PROCHLORPERAZINE
     Dosage: TWICE A DAY AS NEEDED.
     Route: 002
     Dates: start: 20150706

REACTIONS (2)
  - Hyponatraemia [Recovering/Resolving]
  - Syncope [Recovering/Resolving]
